FAERS Safety Report 24384861 (Version 1)
Quarter: 2024Q4

REPORT INFORMATION
  Report Type: Spontaneous
  Country: US (occurrence: None)
  Receive Date: 20241001
  Receipt Date: 20241001
  Transmission Date: 20250115
  Serious: Yes (Death)
  Sender: Public
  Company Number: None

PATIENT
  Sex: Female

DRUGS (2)
  1. RILUZOLE [Suspect]
     Active Substance: RILUZOLE
     Indication: Amyotrophic lateral sclerosis
     Dosage: FREQ: TAKE 1 TABLET BY MOUTH 2 TIMES DAILY BEFORE MEALS.
     Route: 048
     Dates: start: 20220624, end: 202409
  2. ATENOLOL [Concomitant]

REACTIONS (1)
  - Death [None]
